FAERS Safety Report 19790987 (Version 2)
Quarter: 2021Q4

REPORT INFORMATION
  Report Type: Report from Study
  Country: JP (occurrence: JP)
  Receive Date: 20210906
  Receipt Date: 20211006
  Transmission Date: 20220303
  Serious: Yes (Hospitalization)
  Sender: FDA-Public Use
  Company Number: JP-ALXN-A202109717

PATIENT
  Age: 43 Year
  Sex: Female

DRUGS (13)
  1. STRENSIQ [Suspect]
     Active Substance: ASFOTASE ALFA
     Indication: Hypophosphatasia
     Dosage: 1.86 MG, TIW
     Route: 058
     Dates: start: 20201125
  2. DIMETHICONE 350 [Concomitant]
     Active Substance: DIMETHICONE 350
     Indication: Constipation
     Dosage: 40 MG, TID
     Route: 048
  3. MOSAPRIDE CITRATE [Concomitant]
     Active Substance: MOSAPRIDE CITRATE
     Indication: Constipation
     Dosage: 5 MG, TID
     Route: 048
  4. DIETARY SUPPLEMENT\PROBIOTICS [Concomitant]
     Active Substance: DIETARY SUPPLEMENT\PROBIOTICS
     Indication: Constipation
     Dosage: 12 MG, TID
     Route: 048
  5. AMITIZA [Concomitant]
     Active Substance: LUBIPROSTONE
     Indication: Constipation
     Dosage: 24 ?G, BID
     Route: 048
  6. COLCHICINE [Concomitant]
     Active Substance: COLCHICINE
     Indication: Behcet^s syndrome
     Dosage: 0.5 MG, BID
     Route: 048
  7. REBAMIPIDE [Concomitant]
     Active Substance: REBAMIPIDE
     Indication: Behcet^s syndrome
     Dosage: 100 MG, QD
     Route: 048
  8. VOLTAREN [Concomitant]
     Active Substance: DICLOFENAC SODIUM
     Indication: Behcet^s syndrome
     Dosage: 25 MG, QD
     Route: 048
  9. TRIAMCINOLONE [Concomitant]
     Active Substance: TRIAMCINOLONE
     Indication: Behcet^s syndrome
     Dosage: 25 ?G, TID
     Route: 062
  10. VOLTAREN [Concomitant]
     Active Substance: DICLOFENAC SODIUM
     Indication: Behcet^s syndrome
     Dosage: 25 MG, PRN
     Route: 054
  11. BUTYLSCOPOLAMINE BROMIDE [Concomitant]
     Active Substance: BUTYLSCOPOLAMINE BROMIDE
     Indication: Behcet^s syndrome
     Dosage: 10 MG, PRN
     Route: 048
  12. DEXAMETHASONE [Concomitant]
     Active Substance: DEXAMETHASONE
     Indication: Behcet^s syndrome
     Dosage: UNK, PRN
     Route: 062
  13. ALESION [Concomitant]
     Active Substance: EPINASTINE HYDROCHLORIDE
     Indication: Behcet^s syndrome
     Dosage: UNK, QID
     Route: 047

REACTIONS (1)
  - Ovarian cyst [Recovered/Resolved]

NARRATIVE: CASE EVENT DATE: 20210401
